FAERS Safety Report 8117451-4 (Version None)
Quarter: 2012Q1

REPORT INFORMATION
  Report Type: 
  Country: None (occurrence: None)
  Receive Date: 20120207
  Receipt Date: 20120124
  Transmission Date: 20120608
  Serious: Yes (Hospitalization, Disabling)
  Sender: FDA-Public Use
  Company Number: FR-BIOGENIDEC-2011BI023444

PATIENT
  Age: 40 Year
  Sex: Male

DRUGS (5)
  1. MICARDIS [Concomitant]
  2. OMEXEL [Concomitant]
  3. LANSOPRAZOLE [Concomitant]
  4. ANTIDEPRESSIVE [Concomitant]
     Indication: DEPRESSIVE SYMPTOM
     Dates: start: 20110301
  5. TYSABRI [Suspect]
     Indication: MULTIPLE SCLEROSIS
     Route: 042
     Dates: start: 20101101, end: 20110525

REACTIONS (1)
  - CENTRAL NERVOUS SYSTEM LYMPHOMA [None]
